FAERS Safety Report 23150471 (Version 1)
Quarter: 2023Q4

REPORT INFORMATION
  Report Type: Spontaneous
  Country: CN (occurrence: CN)
  Receive Date: 20231106
  Receipt Date: 20231106
  Transmission Date: 20240110
  Serious: Yes (Other)
  Sender: FDA-Public Use
  Company Number: CN-PFIZER INC-202300351450

PATIENT
  Age: 2 Year
  Sex: Male

DRUGS (2)
  1. ZITHROMAX [Suspect]
     Active Substance: AZITHROMYCIN DIHYDRATE
     Indication: Pneumonia mycoplasmal
     Dosage: UNKNOWN DOSE FOR FIVE DAYS AND STOPPED FOR TWO DAYS
     Route: 048
  2. ZITHROMAX [Suspect]
     Active Substance: AZITHROMYCIN DIHYDRATE
     Dosage: UNKNOWN DOSE FOR THREE DAYS AND STOPPED FOR FOUR DAYS
     Route: 048

REACTIONS (1)
  - Pneumonia [Unknown]
